FAERS Safety Report 20664555 (Version 2)
Quarter: 2022Q2

REPORT INFORMATION
  Report Type: Spontaneous
  Country: US (occurrence: US)
  Receive Date: 20220401
  Receipt Date: 20220518
  Transmission Date: 20220721
  Serious: No
  Sender: FDA-Public Use
  Company Number: US-PFIZER INC-202200506489

PATIENT
  Age: 14 Year
  Sex: Male
  Weight: 38.1 kg

DRUGS (1)
  1. GENOTROPIN [Suspect]
     Active Substance: SOMATROPIN
     Indication: Blood growth hormone
     Dosage: 1.8, INJECTION, ONCE A DAY

REACTIONS (5)
  - Poor quality device used [Unknown]
  - Drug dose omission by device [Unknown]
  - Device use error [Unknown]
  - Device information output issue [Unknown]
  - Device physical property issue [Unknown]

NARRATIVE: CASE EVENT DATE: 20220301
